FAERS Safety Report 21775179 (Version 2)
Quarter: 2023Q1

REPORT INFORMATION
  Report Type: Spontaneous
  Country: JP (occurrence: JP)
  Receive Date: 20221225
  Receipt Date: 20230328
  Transmission Date: 20230418
  Serious: Yes (Death, Hospitalization, Other)
  Sender: FDA-Public Use
  Company Number: JP-002147023-NVSJ2022JP276596

PATIENT
  Age: 72 Year
  Sex: Female
  Weight: 53.6 kg

DRUGS (6)
  1. ENTRESTO [Suspect]
     Active Substance: SACUBITRIL\VALSARTAN
     Indication: Hypertension
     Dosage: 100 MG, QD
     Route: 048
     Dates: start: 20220819, end: 20221014
  2. ENTRESTO [Suspect]
     Active Substance: SACUBITRIL\VALSARTAN
     Dosage: 50 MG, QD
     Route: 048
     Dates: start: 20221015, end: 20221103
  3. ENTRESTO [Suspect]
     Active Substance: SACUBITRIL\VALSARTAN
     Dosage: 100 MG, QD
     Route: 048
     Dates: start: 20221104, end: 20221110
  4. ATORVASTATIN [Concomitant]
     Active Substance: ATORVASTATIN
     Indication: Dyslipidaemia
     Dosage: 5 MG, QD
     Route: 048
     Dates: start: 20211203, end: 20221114
  5. SITAFLOXACIN [Concomitant]
     Active Substance: SITAFLOXACIN
     Indication: Cystitis
     Dosage: 50 MG, BID
     Route: 048
     Dates: start: 20221006, end: 20221010
  6. CEFZON [Concomitant]
     Indication: Cystitis
     Dosage: 100 MG, TID
     Route: 048
     Dates: start: 20220819, end: 20220822

REACTIONS (18)
  - Haematuria [Fatal]
  - Microscopic polyangiitis [Fatal]
  - Chronic kidney disease [Fatal]
  - Eyelid oedema [Fatal]
  - Oedema peripheral [Fatal]
  - Face oedema [Fatal]
  - Pericarditis [Fatal]
  - Hypertension [Unknown]
  - Blood potassium increased [Unknown]
  - Blood pressure decreased [Unknown]
  - Limb discomfort [Unknown]
  - Diarrhoea [Unknown]
  - Peripheral coldness [Unknown]
  - Physical deconditioning [Unknown]
  - Feeding disorder [Unknown]
  - Hypoaesthesia [Unknown]
  - Back pain [Unknown]
  - Contraindicated product administered [Unknown]

NARRATIVE: CASE EVENT DATE: 20221006
